FAERS Safety Report 7381692-4 (Version None)
Quarter: 2011Q1

REPORT INFORMATION
  Report Type: 
  Country: None (occurrence: None)
  Receive Date: 20110329
  Receipt Date: 20110323
  Transmission Date: 20110831
  Serious: Yes (Other)
  Sender: FDA-Public Use
  Company Number: SI-JNJFOC-20110311039

PATIENT

DRUGS (4)
  1. DOXORUBICIN HCL [Suspect]
     Indication: ILL-DEFINED DISORDER
     Route: 042
  2. TAVEGIL [Concomitant]
     Route: 065
  3. OXYGEN [Concomitant]
     Route: 065
  4. SOLU-MEDROL [Concomitant]
     Route: 065

REACTIONS (4)
  - VISUAL IMPAIRMENT [None]
  - DYSPNOEA [None]
  - OXYGEN SATURATION DECREASED [None]
  - INFUSION RELATED REACTION [None]
